FAERS Safety Report 25914181 (Version 1)
Quarter: 2025Q4

REPORT INFORMATION
  Report Type: Spontaneous
  Country: EU (occurrence: EU)
  Receive Date: 20251013
  Receipt Date: 20251013
  Transmission Date: 20260118
  Serious: Yes (Hospitalization)
  Sender: MERCK SHARP & DOHME LLC
  Company Number: EU-DCGMA-25205870

PATIENT
  Age: 60 Year
  Sex: Female

DRUGS (11)
  1. KEYTRUDA [Suspect]
     Active Substance: PEMBROLIZUMAB
     Indication: Neoplasm malignant
     Dosage: 200 MG
     Route: 042
     Dates: start: 20250606, end: 20250627
  2. CANDESARTAN [Concomitant]
     Active Substance: CANDESARTAN
     Route: 048
  3. AMLODIPINE [Concomitant]
     Active Substance: AMLODIPINE BESYLATE
     Route: 048
  4. CARBOPLATIN\PACLITAXEL [Concomitant]
     Active Substance: CARBOPLATIN\PACLITAXEL
     Indication: Breast cancer
     Dosage: AUC 1,5/80MG/M2; ANWENDUNGSDATEN: 06.06.25, 12.06.25, 19.06.25, 27.06.25, 07.07.25, 14.07.25, 21....
     Route: 042
  5. Dexamethasone;Granisetron; Clemastin [Concomitant]
     Indication: Supportive care
     Dosage: 8MG/2MG/2MG; ANWENDUNGSDATEN: 06.06.25, 12.06.25, 19.06.25, 27.06.25, 07.07.25, 14.07.25, 21.07.25
     Route: 042
  6. ESCITALOPRAM [Concomitant]
     Active Substance: ESCITALOPRAM OXALATE
     Route: 048
  7. ACYCLOVIR [Concomitant]
     Active Substance: ACYCLOVIR
     Indication: Herpes zoster
  8. ACETAMINOPHEN [Concomitant]
     Active Substance: ACETAMINOPHEN
     Route: 048
     Dates: start: 20250606, end: 20250627
  9. LEVOTHYROXINE [Concomitant]
     Active Substance: LEVOTHYROXINE
     Route: 048
  10. INSULIN ASPART [Concomitant]
     Active Substance: INSULIN ASPART
     Dosage: 100 E/ML
     Route: 058
  11. DAPAGLIFLOZIN [Concomitant]
     Active Substance: DAPAGLIFLOZIN
     Route: 048

REACTIONS (3)
  - Acute kidney injury [Not Recovered/Not Resolved]
  - Immune-mediated nephritis [Not Recovered/Not Resolved]
  - Immune-mediated dermatitis [Not Recovered/Not Resolved]

NARRATIVE: CASE EVENT DATE: 20250728
